FAERS Safety Report 19793342 (Version 2)
Quarter: 2021Q4

REPORT INFORMATION
  Report Type: Spontaneous
  Country: EC (occurrence: EC)
  Receive Date: 20210906
  Receipt Date: 20211022
  Transmission Date: 20220303
  Serious: Yes (Other)
  Sender: FDA-Public Use
  Company Number: 2021A708664

PATIENT
  Sex: Female

DRUGS (3)
  1. FASLODEX [Suspect]
     Active Substance: FULVESTRANT
     Indication: Breast cancer
     Dosage: 60 MILLIGRAM, CYCLICAL.
     Route: 030
     Dates: start: 20201118, end: 20210802
  2. KISQALI [Suspect]
     Active Substance: RIBOCICLIB
     Indication: Breast cancer
     Route: 048
     Dates: start: 20201118, end: 20210802
  3. PROLIA [Suspect]
     Active Substance: DENOSUMAB
     Indication: Breast cancer
     Dosage: UNKNOWN, CYCLICAL.
     Route: 030
     Dates: start: 20201118, end: 20210802

REACTIONS (1)
  - Nodule [Unknown]

NARRATIVE: CASE EVENT DATE: 20210701
